FAERS Safety Report 4790667-0 (Version None)
Quarter: 2005Q4

REPORT INFORMATION
  Report Type: 
  Country: None (occurrence: None)
  Receive Date: 20051006
  Receipt Date: 20050920
  Transmission Date: 20060501
  Serious: Yes (Death, Hospitalization)
  Sender: FDA-Public Use
  Company Number: US-MERCK-0509USA03020

PATIENT
  Age: 75 Year
  Sex: Male
  Weight: 72 kg

DRUGS (1)
  1. VIOXX [Suspect]
     Indication: ARTHRITIS
     Route: 048
     Dates: start: 19991220, end: 20010709

REACTIONS (11)
  - ACUTE MYOCARDIAL INFARCTION [None]
  - BUNDLE BRANCH BLOCK RIGHT [None]
  - CARDIO-RESPIRATORY ARREST [None]
  - CAROTID ARTERY STENOSIS [None]
  - CELLULITIS [None]
  - COLONIC POLYP [None]
  - CORONARY ARTERY DISEASE [None]
  - DYSPNOEA [None]
  - MITRAL VALVE INCOMPETENCE [None]
  - MYOCARDIAL INFARCTION [None]
  - VENTRICULAR DYSFUNCTION [None]
